FAERS Safety Report 24830097 (Version 2)
Quarter: 2025Q1

REPORT INFORMATION
  Report Type: Report from Study
  Country: US (occurrence: US)
  Receive Date: 20250110
  Receipt Date: 20250325
  Transmission Date: 20250408
  Serious: Yes (Other)
  Sender: TAKEDA
  Company Number: US-TAKEDA-2024TUS085855

PATIENT
  Sex: Female

DRUGS (1)
  1. VEDOLIZUMAB [Suspect]
     Active Substance: VEDOLIZUMAB
     Indication: Product used for unknown indication

REACTIONS (6)
  - Crohn^s disease [Unknown]
  - Thought blocking [Unknown]
  - Tremor [Unknown]
  - Oral discomfort [Unknown]
  - Product dose omission issue [Unknown]
  - Dyspepsia [Unknown]
